FAERS Safety Report 9681590 (Version 1)
Quarter: 2013Q4

REPORT INFORMATION
  Report Type: Spontaneous
  Country: US (occurrence: US)
  Receive Date: 20131111
  Receipt Date: 20131111
  Transmission Date: 20140711
  Serious: Yes (Other)
  Sender: FDA-Public Use
  Company Number: US-PFIZER INC-2013317997

PATIENT
  Age: 55 Year
  Sex: Male

DRUGS (8)
  1. TIGECYCLINE [Suspect]
     Indication: OSTEOMYELITIS
     Dosage: UNK
  2. INSULIN GLARGINE [Concomitant]
     Dosage: 30 IU, 1X/DAY
  3. INSULIN ASPART [Concomitant]
     Dosage: 8 UNITS, UNK
  4. GABAPENTIN [Concomitant]
     Dosage: UNK
  5. LISINOPRIL [Concomitant]
     Dosage: UNK
  6. AMLODIPINE [Concomitant]
     Dosage: UNK
  7. CLOPIDOGREL [Concomitant]
     Dosage: UNK
  8. LOVASTATIN [Concomitant]
     Dosage: UNK

REACTIONS (2)
  - Loss of consciousness [Unknown]
  - Hypoglycaemia [Unknown]
